FAERS Safety Report 14922951 (Version 1)
Quarter: 2018Q2

REPORT INFORMATION
  Report Type: Report from Study
  Country: CA (occurrence: CA)
  Receive Date: 20180522
  Receipt Date: 20180522
  Transmission Date: 20180711
  Serious: Yes (Hospitalization, Other)
  Sender: FDA-Public Use
  Company Number: PHHY2017CA185426

PATIENT
  Sex: Female

DRUGS (1)
  1. ILARIS [Suspect]
     Active Substance: CANAKINUMAB
     Indication: MUCKLE-WELLS SYNDROME
     Dosage: 150 MG, Q4W
     Route: 058
     Dates: start: 20151215

REACTIONS (45)
  - Osteonecrosis [Unknown]
  - Sensitivity to weather change [Recovering/Resolving]
  - Dizziness [Not Recovered/Not Resolved]
  - Rhinorrhoea [Unknown]
  - Bronchitis [Unknown]
  - Back pain [Unknown]
  - Allodynia [Unknown]
  - Cough [Unknown]
  - Wheezing [Unknown]
  - Lower respiratory tract infection [Unknown]
  - Pruritus [Recovering/Resolving]
  - Vision blurred [Unknown]
  - Skin irritation [Unknown]
  - Urticaria [Recovering/Resolving]
  - Burning sensation [Recovering/Resolving]
  - Joint swelling [Unknown]
  - Palpitations [Unknown]
  - Dyspnoea [Unknown]
  - Viral upper respiratory tract infection [Unknown]
  - Pain [Unknown]
  - Pigmentation disorder [Recovering/Resolving]
  - Mydriasis [Unknown]
  - Arthritis [Unknown]
  - Migraine [Unknown]
  - Pneumonia [Unknown]
  - Cardiac flutter [Unknown]
  - Hypoacusis [Recovering/Resolving]
  - Musculoskeletal stiffness [Unknown]
  - Pyrexia [Not Recovered/Not Resolved]
  - Oropharyngeal pain [Recovered/Resolved]
  - Malaise [Unknown]
  - Condition aggravated [Unknown]
  - Head discomfort [Unknown]
  - Ocular hyperaemia [Unknown]
  - Arthralgia [Unknown]
  - Rash [Recovering/Resolving]
  - Nasal congestion [Unknown]
  - Rhonchi [Unknown]
  - Viral pharyngitis [Unknown]
  - Therapeutic response shortened [Unknown]
  - Headache [Recovering/Resolving]
  - Tachycardia [Unknown]
  - Cyst [Unknown]
  - Nodule [Unknown]
  - Muckle-Wells syndrome [Unknown]
